FAERS Safety Report 4716776-X (Version None)
Quarter: 2005Q3

REPORT INFORMATION
  Report Type: 
  Country: None (occurrence: None)
  Receive Date: 20050714
  Receipt Date: 20050629
  Transmission Date: 20060218
  Serious: Yes (Hospitalization)
  Sender: FDA-Public Use
  Company Number: 032-13

PATIENT
  Age: 55 Year
  Sex: Male

DRUGS (17)
  1. TEVETEN [Suspect]
     Indication: HYPERTENSION
     Dosage: 600 MG UNK; PO
     Route: 048
     Dates: start: 20001206
  2. TEVETEN [Suspect]
     Indication: THROMBOSIS PROPHYLAXIS
     Dosage: 600 MG UNK; PO
     Route: 048
     Dates: start: 20001206
  3. CYCLOSPORINE [Concomitant]
  4. PREDNISONE [Concomitant]
  5. TRIMETHOPRIM [Concomitant]
  6. SULFAMETHOXAZOLE [Concomitant]
  7. CALCIUM GLUBIONATE [Concomitant]
  8. . [Concomitant]
  9. . [Concomitant]
  10. COLECALCIFEROL [Concomitant]
  11. MAGNESIUM [Concomitant]
  12. ZANTAC [Concomitant]
  13. ASPIRIN [Concomitant]
  14. GANCICLOVIR SODIUM [Concomitant]
  15. LASIX [Concomitant]
  16. PRAVASTATIN SODIUM [Concomitant]
  17. CLONIDINE [Concomitant]

REACTIONS (1)
  - PERICARDIAL EFFUSION [None]
